FAERS Safety Report 7821767-6 (Version None)
Quarter: 2011Q4

REPORT INFORMATION
  Report Type: 
  Country: None (occurrence: None)
  Receive Date: 20111018
  Receipt Date: 20110302
  Transmission Date: 20120403
  Serious: No
  Sender: FDA-Public Use
  Company Number: US-ASTRAZENECA-2011SE11662

PATIENT
  Age: 78 Year
  Sex: Male
  Weight: 74.8 kg

DRUGS (8)
  1. ASPIRIN [Concomitant]
  2. TEMAZEPAM [Concomitant]
     Indication: SLEEP DISORDER
  3. VITAMIN TAB [Concomitant]
  4. SYMBICORT [Suspect]
     Indication: CHRONIC OBSTRUCTIVE PULMONARY DISEASE
     Dosage: 160 MCG TWICE A DAY
     Route: 055
     Dates: start: 20100101, end: 20110201
  5. OMEGA FISHOILS [Concomitant]
  6. LOVASTATIN [Concomitant]
     Indication: HYPERCHOLESTEROLAEMIA
  7. SYMBICORT [Suspect]
     Dosage: TURBUHALER
     Route: 055
  8. CAPTOPRIL [Concomitant]
     Indication: HYPERTENSION

REACTIONS (5)
  - DRUG DOSE OMISSION [None]
  - COUGH [None]
  - WHEEZING [None]
  - HAEMOPTYSIS [None]
  - BRONCHITIS [None]
